FAERS Safety Report 19095348 (Version 2)
Quarter: 2021Q2

REPORT INFORMATION
  Report Type: Spontaneous
  Country: MY (occurrence: MY)
  Receive Date: 20210406
  Receipt Date: 20210408
  Transmission Date: 20210717
  Serious: Yes (Life-Threatening, Hospitalization, Other)
  Sender: FDA-Public Use
  Company Number: MY-SA-2021SA102035

PATIENT
  Sex: Female

DRUGS (1)
  1. ARAVA [Suspect]
     Active Substance: LEFLUNOMIDE
     Dosage: 20 MG, QD

REACTIONS (7)
  - Pseudomonas test positive [Unknown]
  - Escherichia test positive [Unknown]
  - Septic shock [Unknown]
  - Intervertebral disc degeneration [Unknown]
  - Postoperative wound infection [Unknown]
  - Enterobacter test positive [Unknown]
  - Critical illness [Unknown]
